FAERS Safety Report 10433173 (Version 1)
Quarter: 2014Q3

REPORT INFORMATION
  Report Type: Spontaneous
  Country: US (occurrence: None)
  Receive Date: 20140815
  Receipt Date: 20140815
  Transmission Date: 20150326
  Serious: No
  Sender: FDA-Public Use
  Company Number: A-US2014-101528

PATIENT
  Age: 78 Year
  Sex: Female

DRUGS (3)
  1. OPSUMIT [Suspect]
     Active Substance: MACITENTAN
     Indication: PULMONARY HYPERTENSION
     Route: 048
     Dates: start: 20140324
  2. TOVIAZ [Concomitant]
     Active Substance: FESOTERODINE FUMARATE
  3. OXAPROZIN (OXAPROZIN) [Concomitant]

REACTIONS (1)
  - Pigmentation disorder [None]

NARRATIVE: CASE EVENT DATE: 20140521
